FAERS Safety Report 4666401-1 (Version None)
Quarter: 2005Q2

REPORT INFORMATION
  Report Type: 
  Country: None (occurrence: None)
  Receive Date: 20050518
  Receipt Date: 20050505
  Transmission Date: 20051028
  Serious: Yes (Disabling, Other)
  Sender: FDA-Public Use
  Company Number: 2005073840

PATIENT
  Sex: Female

DRUGS (8)
  1. PREDNISONE TAB [Suspect]
     Indication: ILL-DEFINED DISORDER
  2. ZOLOFT [Concomitant]
  3. NORVASC [Concomitant]
  4. RELPAX [Concomitant]
  5. FELDENE [Concomitant]
  6. ZITHROMAX [Concomitant]
  7. DIFLUCAN [Concomitant]
  8. VALDECOXIB [Concomitant]

REACTIONS (1)
  - OSTEONECROSIS [None]
